FAERS Safety Report 9848779 (Version 4)
Quarter: 2015Q4

REPORT INFORMATION
  Report Type: Report from Study
  Country: US (occurrence: US)
  Receive Date: 20140128
  Receipt Date: 20151230
  Transmission Date: 20160305
  Serious: Yes (Other)
  Sender: FDA-Public Use
  Company Number: US-ROCHE-1337911

PATIENT
  Sex: Female

DRUGS (6)
  1. ACTEMRA [Suspect]
     Active Substance: TOCILIZUMAB
     Indication: RHEUMATOID ARTHRITIS
     Route: 058
     Dates: end: 2012
  2. ACTEMRA [Suspect]
     Active Substance: TOCILIZUMAB
     Route: 058
     Dates: start: 201401
  3. ACTEMRA [Suspect]
     Active Substance: TOCILIZUMAB
     Route: 058
  4. ORENCIA [Concomitant]
     Active Substance: ABATACEPT
  5. METHOTREXATE [Concomitant]
     Active Substance: METHOTREXATE
  6. ENBREL [Concomitant]
     Active Substance: ETANERCEPT

REACTIONS (4)
  - Rash [Unknown]
  - Oral mucosal eruption [Unknown]
  - Pruritus [Unknown]
  - Drug ineffective [Unknown]
